FAERS Safety Report 7515789-2 (Version None)
Quarter: 2011Q2

REPORT INFORMATION
  Report Type: 
  Country: None (occurrence: None)
  Receive Date: 20110601
  Receipt Date: 20110531
  Transmission Date: 20111010
  Serious: Yes (Hospitalization)
  Sender: FDA-Public Use
  Company Number: JP-PFIZER INC-2011117675

PATIENT
  Age: 78 Year
  Sex: Male

DRUGS (8)
  1. VESICARE [Concomitant]
  2. VARENICLINE TARTRATE [Suspect]
     Dosage: UNK
     Route: 048
     Dates: start: 20110507, end: 20110517
  3. ASPIRIN [Concomitant]
  4. ANPLAG [Concomitant]
  5. MUCOSOLVAN [Concomitant]
  6. METHYCOBAL [Concomitant]
  7. FLIVAS [Concomitant]
  8. ADOAIR [Concomitant]

REACTIONS (2)
  - DYSPNOEA [None]
  - CARDIOMEGALY [None]
